FAERS Safety Report 20575288 (Version 12)
Quarter: 2024Q1

REPORT INFORMATION
  Report Type: Spontaneous
  Country: US (occurrence: US)
  Receive Date: 20220310
  Receipt Date: 20240305
  Transmission Date: 20240410
  Serious: Yes (Hospitalization, Disabling, Other)
  Sender: FDA-Public Use
  Company Number: US-ORGANON-O2203USA000840

PATIENT
  Sex: Male

DRUGS (18)
  1. SINGULAIR [Suspect]
     Active Substance: MONTELUKAST SODIUM
     Indication: Asthma
     Dosage: 10 MG TABLET TAKE 1 TABLET BY MOUTH EVERY EVENING
     Route: 048
     Dates: start: 20170707, end: 20210616
  2. SYMBICORT [Suspect]
     Active Substance: BUDESONIDE\FORMOTEROL FUMARATE DIHYDRATE
     Dosage: 2 DOSAGE FORM, BID (160-4.5 MCG/ACT)
     Dates: end: 20170929
  3. QVAR [Suspect]
     Active Substance: BECLOMETHASONE DIPROPIONATE
     Dosage: 40 MCG/ACTUATION AEROSOL AS DIRECTED.
     Dates: start: 20170929
  4. ALBUTEROL SULFATE [Suspect]
     Active Substance: ALBUTEROL SULFATE
     Dosage: 0.083% NEBU SOLN USES THE NEBULIZER TO INHALE THE CONTENTS OF ONE VIAL THREE TIMES PER DAY.
     Dates: start: 20170707
  5. ALBUTEROL SULFATE [Suspect]
     Active Substance: ALBUTEROL SULFATE
     Dosage: 0.5%, 0.5 ML, INHALATION, THREE TIMES A DAY,
  6. VENTOLIN HFA [Suspect]
     Active Substance: ALBUTEROL SULFATE
     Dosage: 90 MCG/ACTUATION HFA ACROSOL INHALER: INHALE 1 TO 2 PUFFS BY MOUTH EVERY 6 HOURS IF
     Route: 048
     Dates: start: 20170215
  7. FLUTICASONE [Suspect]
     Active Substance: FLUTICASONE
     Dosage: UNK
  8. CEFIXIME [Suspect]
     Active Substance: CEFIXIME
     Indication: Suicide attempt
     Dosage: UNK
  9. CEFIXIME [Suspect]
     Active Substance: CEFIXIME
     Dosage: UNK
     Dates: start: 20190118
  10. CEFIXIME [Suspect]
     Active Substance: CEFIXIME
     Dosage: 1 TABLET, TID
     Route: 048
  11. ACETAMINOPHEN\OXYCODONE HYDROCHLORIDE\OXYCODONE TEREPHTHALATE [Suspect]
     Active Substance: ACETAMINOPHEN\OXYCODONE HYDROCHLORIDE\OXYCODONE TEREPHTHALATE
     Indication: Suicide attempt
     Dosage: UNK
  12. ACETAMINOPHEN\OXYCODONE HYDROCHLORIDE\OXYCODONE TEREPHTHALATE [Suspect]
     Active Substance: ACETAMINOPHEN\OXYCODONE HYDROCHLORIDE\OXYCODONE TEREPHTHALATE
     Dosage: UNK
     Dates: start: 20190118
  13. ACETAMINOPHEN\OXYCODONE HYDROCHLORIDE\OXYCODONE TEREPHTHALATE [Suspect]
     Active Substance: ACETAMINOPHEN\OXYCODONE HYDROCHLORIDE\OXYCODONE TEREPHTHALATE
     Dosage: 1 TABLET, QID
     Route: 048
  14. MELOXICAM [Suspect]
     Active Substance: MELOXICAM
     Indication: Suicide attempt
     Dosage: UNK
  15. MELOXICAM [Suspect]
     Active Substance: MELOXICAM
     Dosage: UNK
     Dates: start: 20190118
  16. VALIUM [Concomitant]
     Active Substance: DIAZEPAM
     Dosage: UNK
  17. NEXIUM I.V. [Concomitant]
     Active Substance: ESOMEPRAZOLE SODIUM
     Dosage: UNK
  18. VENLAFAXINE [Concomitant]
     Active Substance: VENLAFAXINE HYDROCHLORIDE
     Indication: Pain
     Dosage: UNK

REACTIONS (54)
  - Neuropsychological symptoms [Not Recovered/Not Resolved]
  - Major depression [Not Recovered/Not Resolved]
  - Suicide attempt [Not Recovered/Not Resolved]
  - Substance abuse [Unknown]
  - Suicidal ideation [Recovered/Resolved]
  - Spinal cord injury [Unknown]
  - Hallucination [Unknown]
  - Drug dependence [Unknown]
  - Poisoning [Unknown]
  - Disability [Unknown]
  - Delusional disorder, unspecified type [Unknown]
  - Schizoaffective disorder bipolar type [Unknown]
  - Bipolar I disorder [Unknown]
  - Drug abuse [Unknown]
  - Drug dependence [Unknown]
  - Psychotic disorder [Recovered/Resolved]
  - Cervical radiculopathy [Unknown]
  - Intervertebral disc protrusion [Unknown]
  - Psychotic disorder [Unknown]
  - Pain [Unknown]
  - Hypoaesthesia [Unknown]
  - Pyrexia [Unknown]
  - Diarrhoea [Unknown]
  - Headache [Unknown]
  - Insomnia [Unknown]
  - Weight increased [Unknown]
  - Dysania [Unknown]
  - Abdominal distension [Unknown]
  - Gastrointestinal motility disorder [Unknown]
  - Mucous stools [Unknown]
  - Abdominal discomfort [Unknown]
  - Upper respiratory tract infection [Unknown]
  - Intentional overdose [Unknown]
  - Muscle strain [Unknown]
  - Post-traumatic amnestic disorder [Unknown]
  - Anxiety disorder [Unknown]
  - Post-traumatic stress disorder [Unknown]
  - Paranoia [Unknown]
  - Pressure of speech [Unknown]
  - Agitation [Recovered/Resolved]
  - Fasting [Unknown]
  - Weight decreased [Unknown]
  - Bronchitis [Unknown]
  - Dyspnoea [Unknown]
  - Productive cough [Unknown]
  - Wheezing [Unknown]
  - Neck pain [Not Recovered/Not Resolved]
  - Chest pain [Unknown]
  - Back pain [Unknown]
  - Arthralgia [Unknown]
  - Spinal pain [Unknown]
  - Intervertebral disc degeneration [Unknown]
  - Nausea [Unknown]
  - Spinal osteoarthritis [Unknown]

NARRATIVE: CASE EVENT DATE: 20180101
